FAERS Safety Report 8594117-8 (Version None)
Quarter: 2012Q3

REPORT INFORMATION
  Report Type: 
  Country: None (occurrence: None)
  Receive Date: 20120814
  Receipt Date: 20120809
  Transmission Date: 20120928
  Serious: Yes (Hospitalization, Disabling)
  Sender: FDA-Public Use
  Company Number: US-009507513-1208USA004551

PATIENT

DRUGS (2)
  1. FOSAMAX [Suspect]
     Dosage: 1 DF, QW
     Route: 048
     Dates: start: 20120719, end: 20120101
  2. FOSAMAX [Suspect]
     Dosage: UNK
     Route: 048

REACTIONS (2)
  - NECK PAIN [None]
  - MUSCULOSKELETAL PAIN [None]
